FAERS Safety Report 6691392-1 (Version None)
Quarter: 2010Q2

REPORT INFORMATION
  Report Type: 
  Country: None (occurrence: None)
  Receive Date: 20100416
  Receipt Date: 20100405
  Transmission Date: 20101027
  Serious: Yes (Hospitalization)
  Sender: FDA-Public Use
  Company Number: 2010BM000092

PATIENT
  Age: 19 Year
  Sex: Female

DRUGS (1)
  1. NAGLAZYME [Suspect]
     Indication: MUCOPOLYSACCHARIDOSIS VI
     Dosage: 5 MG;QW;IVDRP
     Route: 041
     Dates: start: 20030301

REACTIONS (1)
  - CARPAL TUNNEL SYNDROME [None]
